FAERS Safety Report 19361134 (Version 1)
Quarter: 2021Q2

REPORT INFORMATION
  Report Type: Spontaneous
  Country: US (occurrence: US)
  Receive Date: 20210601
  Receipt Date: 20210601
  Transmission Date: 20210717
  Serious: Yes (Hospitalization)
  Sender: FDA-Public Use
  Company Number: US-ASTRAZENECA-2021A474342

PATIENT
  Age: 25494 Day
  Sex: Male
  Weight: 104.3 kg

DRUGS (3)
  1. BRILINTA [Suspect]
     Active Substance: TICAGRELOR
     Indication: STENT PLACEMENT
     Dosage: DAILY
     Route: 048
     Dates: start: 2020, end: 2020
  2. BRILINTA [Suspect]
     Active Substance: TICAGRELOR
     Indication: MYOCARDIAL INFARCTION
     Dosage: DAILY
     Route: 048
     Dates: start: 2020, end: 2020
  3. PRASUGREL. [Concomitant]
     Active Substance: PRASUGREL

REACTIONS (1)
  - Atrioventricular block [Unknown]
